FAERS Safety Report 18285550 (Version 1)
Quarter: 2020Q3

REPORT INFORMATION
  Report Type: Spontaneous
  Country: US (occurrence: US)
  Receive Date: 20200918
  Receipt Date: 20200918
  Transmission Date: 20201103
  Serious: Yes (Death, Other)
  Sender: FDA-Public Use
  Company Number: US-PURDUE-USA-2020-0166715

PATIENT
  Age: 60 Year
  Sex: Male

DRUGS (3)
  1. OXYCONTIN [Suspect]
     Active Substance: OXYCODONE HYDROCHLORIDE
     Dosage: 40 MG
     Route: 048
  2. OXYCONTIN [Suspect]
     Active Substance: OXYCODONE HYDROCHLORIDE
     Dosage: 20 MG
     Route: 048
  3. OXYCONTIN [Suspect]
     Active Substance: OXYCODONE HYDROCHLORIDE
     Indication: BREAKTHROUGH PAIN
     Dosage: 80 MG
     Route: 048

REACTIONS (8)
  - Chronic obstructive pulmonary disease [Unknown]
  - Death [Fatal]
  - Drug withdrawal syndrome [Unknown]
  - Liver disorder [Unknown]
  - Cardiac failure congestive [Unknown]
  - Cognitive disorder [Unknown]
  - Brain injury [Unknown]
  - Renal disorder [Unknown]
